FAERS Safety Report 15647733 (Version 2)
Quarter: 2018Q4

REPORT INFORMATION
  Report Type: Spontaneous
  Country: SE (occurrence: SE)
  Receive Date: 20181122
  Receipt Date: 20181130
  Transmission Date: 20190205
  Serious: Yes (Hospitalization, Other)
  Sender: FDA-Public Use
  Company Number: SE-REGENERON PHARMACEUTICALS, INC.-2018-45014

PATIENT

DRUGS (2)
  1. EYLEA [Suspect]
     Active Substance: AFLIBERCEPT
     Dosage: SECOND INJECTION PERFORMED DURIGN HOSPITALIZATION FOR LASER TREATMENT
     Route: 031
     Dates: start: 20181106, end: 20181106
  2. EYLEA [Suspect]
     Active Substance: AFLIBERCEPT
     Indication: PRODUCT USED FOR UNKNOWN INDICATION
     Dosage: FIRST INJECTION. TOTAL OF INJECTIONS: 2 INJECTIONS OF EYLEA SO FAR
     Route: 031
     Dates: start: 20180927, end: 20180927

REACTIONS (3)
  - Off label use [Unknown]
  - Laser therapy [Unknown]
  - Product use in unapproved indication [Unknown]

NARRATIVE: CASE EVENT DATE: 20180927
